FAERS Safety Report 25814129 (Version 1)
Quarter: 2025Q3

REPORT INFORMATION
  Report Type: Spontaneous
  Country: US (occurrence: US)
  Receive Date: 20250917
  Receipt Date: 20250917
  Transmission Date: 20251020
  Serious: Yes (Other)
  Sender: NOVO NORDISK
  Company Number: US-NOVOPROD-1522769

PATIENT
  Age: 72 Year
  Sex: Male
  Weight: 99.773 kg

DRUGS (4)
  1. RYBELSUS [Suspect]
     Active Substance: SEMAGLUTIDE
     Indication: Product used for unknown indication
     Route: 048
     Dates: start: 20230901, end: 2023
  2. RYBELSUS [Suspect]
     Active Substance: SEMAGLUTIDE
     Route: 048
     Dates: start: 2023, end: 2023
  3. RYBELSUS [Suspect]
     Active Substance: SEMAGLUTIDE
     Route: 048
     Dates: start: 2023, end: 2023
  4. ALEVE [Suspect]
     Active Substance: NAPROXEN SODIUM
     Indication: Product used for unknown indication

REACTIONS (4)
  - Choking [Recovered/Resolved]
  - Dialysis [Not Recovered/Not Resolved]
  - Gastrooesophageal reflux disease [Recovered/Resolved]
  - Constipation [Recovered/Resolved]

NARRATIVE: CASE EVENT DATE: 20230901
